FAERS Safety Report 9010681 (Version 2)
Quarter: 2013Q1

REPORT INFORMATION
  Report Type: Report from Study
  Country: US (occurrence: US)
  Receive Date: 20130109
  Receipt Date: 20130115
  Transmission Date: 20140127
  Serious: Yes (Hospitalization, Other)
  Sender: FDA-Public Use
  Company Number: US-PFIZER INC-2013001512

PATIENT
  Age: 20 Year
  Sex: Male
  Weight: 86.17 kg

DRUGS (8)
  1. ZOSYN [Suspect]
     Indication: PURULENT DISCHARGE
     Dosage: UNK
  2. ZOSYN [Suspect]
     Indication: PYREXIA
  3. VANCOMYCIN HCL [Suspect]
     Indication: PURULENT DISCHARGE
     Dosage: UNK
  4. VANCOMYCIN HCL [Suspect]
     Indication: PYREXIA
  5. HUMIRA [Suspect]
     Indication: CROHN^S DISEASE
     Dosage: 160 MG, 1X/DAY
     Dates: start: 20120531, end: 20120531
  6. HUMIRA [Suspect]
     Dosage: UNK
     Dates: end: 20120617
  7. TORADOL [Suspect]
     Indication: PAIN
  8. METRONIDAZOLE BENZOATE [Concomitant]

REACTIONS (20)
  - Pyrexia [Unknown]
  - Small intestinal perforation [Unknown]
  - Large intestine perforation [Unknown]
  - Abscess intestinal [Unknown]
  - Splenomegaly [Unknown]
  - Back pain [Unknown]
  - Psoas abscess [Unknown]
  - Mononucleosis heterophile test positive [Unknown]
  - Pyrexia [Unknown]
  - Purulent discharge [Unknown]
  - Renal failure acute [Recovered/Resolved]
  - Pain [Unknown]
  - Wound secretion [Unknown]
  - Ileal perforation [Unknown]
  - Retroperitoneal abscess [Unknown]
  - Caecitis [Unknown]
  - Ileitis [Unknown]
  - Haemorrhage [Unknown]
  - Pain [Unknown]
  - Leukocytosis [Unknown]
